FAERS Safety Report 19567151 (Version 3)
Quarter: 2022Q2

REPORT INFORMATION
  Report Type: Spontaneous
  Country: TR (occurrence: TR)
  Receive Date: 20210716
  Receipt Date: 20220425
  Transmission Date: 20220721
  Serious: Yes (Other)
  Sender: FDA-Public Use
  Company Number: TR-ACCORD-231823

PATIENT
  Age: 53 Year
  Sex: Male

DRUGS (3)
  1. CISPLATIN [Suspect]
     Active Substance: CISPLATIN
     Indication: Testicular seminoma (pure)
     Dosage: CUMULATIVE DOSE: 4 CYCLICAL
  2. ETOPOSIDE [Suspect]
     Active Substance: ETOPOSIDE
     Indication: Testicular seminoma (pure)
     Dosage: CUMULATIVE DOSE: 4 CYCLICAL
  3. BLEOMYCIN [Suspect]
     Active Substance: BLEOMYCIN SULFATE
     Indication: Testicular seminoma (pure)
     Dosage: CUMULATIVE DOSE: 4 CYCLICAL

REACTIONS (1)
  - Pulmonary toxicity [Recovered/Resolved]
